FAERS Safety Report 5509116-X (Version None)
Quarter: 2007Q4

REPORT INFORMATION
  Report Type: 
  Country: None (occurrence: None)
  Receive Date: 20071107
  Receipt Date: 20071026
  Transmission Date: 20080405
  Serious: Yes (Hospitalization)
  Sender: FDA-Public Use
  Company Number: US-ELI_LILLY_AND_COMPANY-US200710007498

PATIENT
  Age: 51 Year
  Sex: Male

DRUGS (3)
  1. CYMBALTA [Suspect]
     Dosage: 20 MG, DAILY (1/D)
     Dates: start: 20060801
  2. CYMBALTA [Suspect]
     Dosage: 60 MG, DAILY (1/D)
  3. ALCOHOL [Concomitant]

REACTIONS (1)
  - CIRRHOSIS ALCOHOLIC [None]
